FAERS Safety Report 19840062 (Version 1)
Quarter: 2021Q3

REPORT INFORMATION
  Report Type: Spontaneous
  Country: NL (occurrence: NL)
  Receive Date: 20210915
  Receipt Date: 20210915
  Transmission Date: 20211014
  Serious: Yes (Life-Threatening, Hospitalization, Disabling, Other)
  Sender: FDA-Public Use
  Company Number: NL-MYLANLABS-2021M1062567

PATIENT
  Age: 61 Year
  Sex: Female
  Weight: 76 kg

DRUGS (4)
  1. PREGABALIN MYLAN [Suspect]
     Active Substance: PREGABALIN
     Indication: DEPRESSION
     Dosage: UNK
     Route: 065
     Dates: start: 202004
  2. CIPROFLOXACIN. [Suspect]
     Active Substance: CIPROFLOXACIN
     Indication: PRODUCT USED FOR UNKNOWN INDICATION
     Dosage: UNK
     Route: 065
     Dates: start: 202004
  3. AMOXICILLIN. [Suspect]
     Active Substance: AMOXICILLIN
     Indication: PRODUCT USED FOR UNKNOWN INDICATION
     Dosage: UNK
     Route: 065
     Dates: start: 202004
  4. PREGABALIN MYLAN [Suspect]
     Active Substance: PREGABALIN
     Indication: ANXIETY

REACTIONS (7)
  - Constipation [Not Recovered/Not Resolved]
  - Fungal infection [Not Recovered/Not Resolved]
  - Dyspnoea [Not Recovered/Not Resolved]
  - Hypokalaemia [Not Recovered/Not Resolved]
  - Dry skin [Not Recovered/Not Resolved]
  - Hyperhidrosis [Not Recovered/Not Resolved]
  - Blister [Not Recovered/Not Resolved]

NARRATIVE: CASE EVENT DATE: 202005
